FAERS Safety Report 9270718 (Version 1)
Quarter: 2013Q2

REPORT INFORMATION
  Report Type: Spontaneous
  Country: US (occurrence: US)
  Receive Date: 20130503
  Receipt Date: 20130503
  Transmission Date: 20140414
  Serious: No
  Sender: FDA-Public Use
  Company Number: US-TEVA-398360USA

PATIENT
  Age: 51 Year
  Sex: Male
  Weight: 95.34 kg

DRUGS (7)
  1. PROAIR HFA [Suspect]
     Indication: PNEUMONIA
     Dosage: 2 PUFFS EVERY 1 TO 2 HRS
     Route: 055
     Dates: start: 20111130, end: 20120201
  2. ANTIBIOTIC [Concomitant]
     Indication: PNEUMONIA
     Dates: start: 20111130
  3. TYLENOL [Concomitant]
     Indication: PAIN
  4. TYLENOL [Concomitant]
     Indication: PYREXIA
  5. COUGH MEDICATION [Concomitant]
     Indication: PNEUMONIA
  6. IBUPROFEN [Concomitant]
     Indication: PAIN
  7. IBUPROFEN [Concomitant]
     Indication: PYREXIA

REACTIONS (2)
  - Breath alcohol test positive [Unknown]
  - Blood alcohol increased [Unknown]
